FAERS Safety Report 21064868 (Version 1)
Quarter: 2022Q3

REPORT INFORMATION
  Report Type: Spontaneous
  Country: CH (occurrence: CH)
  Receive Date: 20220711
  Receipt Date: 20220711
  Transmission Date: 20221027
  Serious: Yes (Hospitalization, Other)
  Sender: FDA-Public Use
  Company Number: CH-NAPPMUNDI-GBR-2022-0099482

PATIENT
  Age: 77 Year
  Sex: Male

DRUGS (22)
  1. OXYCODONE HYDROCHLORIDE [Suspect]
     Active Substance: OXYCODONE HYDROCHLORIDE
     Indication: Product used for unknown indication
     Dosage: 5 MILLIGRAM
     Route: 048
     Dates: start: 20220217, end: 20220301
  2. DIFLUCAN [Suspect]
     Active Substance: FLUCONAZOLE
     Indication: Product used for unknown indication
     Dosage: 400 MILLIGRAM, DAILY
     Route: 042
     Dates: start: 20220218, end: 20220220
  3. TAXOL [Suspect]
     Active Substance: PACLITAXEL
     Indication: Product used for unknown indication
     Dosage: 100 MILLIGRAM (CYCLICALLY 5 TIMES)
     Route: 042
     Dates: start: 20220112, end: 20220210
  4. CARBOPLATIN [Suspect]
     Active Substance: CARBOPLATIN
     Indication: Product used for unknown indication
     Dosage: 180 MILLIGRAM (CYCLICALLY 5 TIMES)
     Route: 042
     Dates: start: 20220112, end: 20220210
  5. METAMIZOLE [Suspect]
     Active Substance: METAMIZOLE
     Indication: Product used for unknown indication
     Dosage: UNK, AS NECESSARY
     Route: 048
     Dates: start: 20220219, end: 20220303
  6. DAFALGAN [Suspect]
     Active Substance: ACETAMINOPHEN
     Indication: Product used for unknown indication
     Dosage: UNK, AS NECESSARY
     Route: 048
     Dates: start: 20220218, end: 20220306
  7. NALOXONE HYDROCHLORIDE\OXYCODONE HYDROCHLORIDE [Suspect]
     Active Substance: NALOXONE HYDROCHLORIDE\OXYCODONE HYDROCHLORIDE
     Indication: Product used for unknown indication
     Dosage: 5/2.5 MG, BID
     Route: 048
     Dates: start: 20220218, end: 20220225
  8. SOTROVIMAB [Suspect]
     Active Substance: SOTROVIMAB
     Indication: Product used for unknown indication
     Dosage: 500 MILLIGRAM, DAILY
     Route: 042
     Dates: start: 20220224, end: 20220224
  9. ESOMEPRAZOLE [Concomitant]
     Active Substance: ESOMEPRAZOLE
     Indication: Product used for unknown indication
     Dosage: 40 MILLIGRAM, DAILY
     Dates: end: 20220217
  10. PANTOPRAZOLE SODIUM [Concomitant]
     Active Substance: PANTOPRAZOLE SODIUM
     Indication: Product used for unknown indication
     Dosage: 40 MILLIGRAM, DAILY
     Dates: start: 20220224
  11. DEXAMETHASONE [Concomitant]
     Active Substance: DEXAMETHASONE
     Indication: Product used for unknown indication
     Dosage: 6 MILLIGRAM, DAILY
     Dates: start: 20220225, end: 20220307
  12. ROSUVASTATIN [Concomitant]
     Active Substance: ROSUVASTATIN
     Indication: Product used for unknown indication
     Dosage: 10 MILLIGRAM, DAILY
  13. ASPIRIN [Concomitant]
     Active Substance: ASPIRIN
     Indication: Product used for unknown indication
     Dosage: 100 MILLIGRAM, DAILY
     Dates: end: 20220307
  14. ALLOPURINOL [Concomitant]
     Active Substance: ALLOPURINOL
     Indication: Product used for unknown indication
     Dosage: 100 MILLIGRAM, DAILY
  15. CANDESARTAN [Concomitant]
     Active Substance: CANDESARTAN
     Indication: Product used for unknown indication
     Dosage: 1.5 DOSAGE FORM, DAILY (STRENGTH: 4 MILLIGRAM)
     Dates: start: 20220308, end: 20220313
  16. CANDESARTAN [Concomitant]
     Active Substance: CANDESARTAN
     Dosage: 1.5 DOSAGE FORM, DAILY (STRENGTH: 8 MILLIGRAM)
     Dates: start: 20220227, end: 20220301
  17. CANDESARTAN [Concomitant]
     Active Substance: CANDESARTAN
     Dosage: 1.5 DOSAGE FORM, DAILY (STRENGTH: 8 MILLIGRAM)
     Dates: end: 20220217
  18. VANCOCIN [Concomitant]
     Active Substance: VANCOMYCIN HYDROCHLORIDE
     Indication: Product used for unknown indication
     Dosage: UNK
     Dates: start: 20220301, end: 20220308
  19. Duofer [Concomitant]
     Indication: Product used for unknown indication
     Dosage: 300 MILLIGRAM, DAILY
     Dates: end: 20220217
  20. LAXIPEG [Concomitant]
     Indication: Product used for unknown indication
     Dosage: 10 GRAM, BID
     Dates: start: 20220222
  21. THIAMINE HYDROCHLORIDE [Concomitant]
     Active Substance: THIAMINE HYDROCHLORIDE
     Indication: Product used for unknown indication
     Dosage: 300 MILLIGRAM, DAILY
     Dates: start: 20220219, end: 20220302
  22. ENOXAPARIN SODIUM [Concomitant]
     Active Substance: ENOXAPARIN SODIUM
     Indication: Product used for unknown indication
     Dosage: 40 MILLIGRAM, HS
     Dates: start: 20220217, end: 20220308

REACTIONS (4)
  - Organising pneumonia [Recovering/Resolving]
  - Liver disorder [Recovered/Resolved]
  - Transaminases increased [Recovered/Resolved]
  - Respiratory failure [Unknown]

NARRATIVE: CASE EVENT DATE: 20220226
